FAERS Safety Report 5153845-7 (Version None)
Quarter: 2006Q4

REPORT INFORMATION
  Report Type: 
  Country: None (occurrence: None)
  Receive Date: 20061120
  Receipt Date: 20061114
  Transmission Date: 20070319
  Serious: Yes (Other)
  Sender: FDA-Public Use
  Company Number: AU-AVENTIS-200621743GDDC

PATIENT
  Age: 88 Year
  Sex: Female

DRUGS (6)
  1. LANTUS [Suspect]
     Route: 058
     Dates: start: 20060901
  2. LIPEX                              /00848101/ [Concomitant]
  3. DIAMICRON [Concomitant]
  4. DILANTIN [Concomitant]
  5. DIURETICS [Concomitant]
  6. ALPRAZOLAM [Concomitant]

REACTIONS (1)
  - CARDIAC FAILURE [None]
